FAERS Safety Report 12663831 (Version 2)
Quarter: 2016Q3

REPORT INFORMATION
  Report Type: Report from Study
  Country: CA (occurrence: CA)
  Receive Date: 20160818
  Receipt Date: 20160921
  Transmission Date: 20161109
  Serious: Yes (Other)
  Sender: FDA-Public Use
  Company Number: CA-JNJFOC-20160809815

PATIENT
  Sex: Female
  Weight: 65 kg

DRUGS (5)
  1. DEXLANSOPRAZOLE [Concomitant]
     Active Substance: DEXLANSOPRAZOLE
     Route: 065
  2. REMICADE [Suspect]
     Active Substance: INFLIXIMAB
     Indication: GRANULOMA SKIN
     Route: 042
     Dates: start: 20150303
  3. REMICADE [Suspect]
     Active Substance: INFLIXIMAB
     Indication: GRANULOMA SKIN
     Route: 042
     Dates: start: 2014
  4. BENZACLIN [Concomitant]
     Active Substance: BENZOYL PEROXIDE\CLINDAMYCIN PHOSPHATE
     Route: 065
  5. TETRACYCLINE [Concomitant]
     Active Substance: TETRACYCLINE
     Route: 065

REACTIONS (3)
  - Off label use [Unknown]
  - Product use issue [Unknown]
  - Lupus-like syndrome [Unknown]

NARRATIVE: CASE EVENT DATE: 2014
